FAERS Safety Report 8367914-1 (Version None)
Quarter: 2012Q2

REPORT INFORMATION
  Report Type: 
  Country: None (occurrence: None)
  Receive Date: 20120516
  Receipt Date: 20120503
  Transmission Date: 20120825
  Serious: Yes (Hospitalization, Disabling, Other)
  Sender: FDA-Public Use
  Company Number: 2010MA000217

PATIENT
  Sex: Female
  Weight: 63.5036 kg

DRUGS (6)
  1. METOCLOPRAMIDE [Suspect]
     Indication: GASTROOESOPHAGEAL REFLUX DISEASE
     Dosage: PO
     Route: 048
     Dates: start: 20081103, end: 20090203
  2. NEURONTIN [Concomitant]
  3. LAMICTAL [Concomitant]
  4. BENADRYL [Concomitant]
  5. LOTENSIN [Concomitant]
  6. EFFEXOR [Concomitant]

REACTIONS (20)
  - DEFORMITY [None]
  - PAIN IN JAW [None]
  - ANXIETY [None]
  - PAIN [None]
  - MUSCLE TWITCHING [None]
  - MUSCULOSKELETAL STIFFNESS [None]
  - DYSTONIA [None]
  - EXCESSIVE EYE BLINKING [None]
  - MUSCLE TIGHTNESS [None]
  - IMPAIRED WORK ABILITY [None]
  - DYSKINESIA [None]
  - ACTIVITIES OF DAILY LIVING IMPAIRED [None]
  - ECONOMIC PROBLEM [None]
  - CONVULSION [None]
  - MENTAL DISORDER [None]
  - TEARFULNESS [None]
  - HYSTERECTOMY [None]
  - NERVOUS SYSTEM DISORDER [None]
  - MULTIPLE INJURIES [None]
  - QUALITY OF LIFE DECREASED [None]
